FAERS Safety Report 5718001-X (Version None)
Quarter: 2008Q2

REPORT INFORMATION
  Report Type: 
  Country: None (occurrence: None)
  Receive Date: 20080425
  Receipt Date: 20080424
  Transmission Date: 20081010
  Serious: Yes (Hospitalization)
  Sender: FDA-Public Use
  Company Number: B0515924A

PATIENT
  Age: 70 Year
  Sex: Female

DRUGS (6)
  1. ESKAZOLE [Suspect]
     Indication: HEPATIC ECHINOCOCCIASIS
     Dosage: 200MG THREE TIMES PER DAY
     Route: 048
     Dates: start: 20080314, end: 20080408
  2. GASTER D [Concomitant]
     Indication: GASTRITIS
     Dosage: 20MG TWICE PER DAY
     Route: 048
     Dates: start: 20080130, end: 20080408
  3. BIOFERMIN R [Concomitant]
     Indication: DIARRHOEA
     Dosage: 1G TWICE PER DAY
     Route: 048
     Dates: start: 20080130, end: 20080408
  4. KAYTWO [Concomitant]
     Indication: HAEMORRHAGE PROPHYLAXIS
     Dosage: 5MG TWICE PER DAY
     Route: 048
     Dates: start: 20080130, end: 20080408
  5. SPELEAR [Concomitant]
     Indication: PRODUCTIVE COUGH
     Dosage: 200MG TWICE PER DAY
     Route: 048
     Dates: start: 20080130, end: 20080408
  6. FERROUS SULFATE TAB [Concomitant]
     Indication: ANAEMIA
     Dosage: 50MG PER DAY
     Route: 048
     Dates: start: 20080206, end: 20080408

REACTIONS (5)
  - ARRHYTHMIA [None]
  - CARDIAC DISORDER [None]
  - PALPITATIONS [None]
  - SUPRAVENTRICULAR TACHYCARDIA [None]
  - WHITE BLOOD CELL COUNT DECREASED [None]
